FAERS Safety Report 20024825 (Version 2)
Quarter: 2021Q4

REPORT INFORMATION
  Report Type: Report from Study
  Country: DE (occurrence: DE)
  Receive Date: 20211102
  Receipt Date: 20211111
  Transmission Date: 20220304
  Serious: Yes (Other)
  Sender: FDA-Public Use
  Company Number: DE-BRISTOL-MYERS SQUIBB COMPANY-BMS-2021-070940

PATIENT
  Age: 69 Year
  Sex: Male
  Weight: 95 kg

DRUGS (3)
  1. PACLITAXEL [Suspect]
     Active Substance: PACLITAXEL
     Indication: Product used for unknown indication
     Dosage: 100 MG PER METER SQUARE
     Route: 042
     Dates: start: 20190131, end: 20190131
  2. PACLITAXEL [Suspect]
     Active Substance: PACLITAXEL
     Dosage: 100 MG PER METER SQUARE
     Route: 042
     Dates: start: 20181016, end: 20190314
  3. CARBOPLATIN [Suspect]
     Active Substance: CARBOPLATIN
     Indication: Non-small cell lung cancer
     Dosage: 6 MG X MIN/ML
     Route: 042
     Dates: start: 20181016, end: 20190228

REACTIONS (1)
  - Polyneuropathy [Recovered/Resolved]

NARRATIVE: CASE EVENT DATE: 20190211
